FAERS Safety Report 7032812-2 (Version None)
Quarter: 2010Q4

REPORT INFORMATION
  Report Type: 
  Country: None (occurrence: None)
  Receive Date: 20101007
  Receipt Date: 20100928
  Transmission Date: 20110411
  Serious: Yes (Death)
  Sender: FDA-Public Use
  Company Number: FR-ELI_LILLY_AND_COMPANY-FR201010000041

PATIENT
  Age: 80 Year
  Sex: Male
  Weight: 70 kg

DRUGS (5)
  1. PRASUGREL HYDROCHLORIDE [Suspect]
     Indication: ACUTE CORONARY SYNDROME
     Dates: start: 20090824
  2. ASPIRIN [Concomitant]
     Dates: start: 20090821
  3. VASTEN [Concomitant]
     Indication: PROPHYLAXIS
     Dates: start: 20090821
  4. BISOPROLOL FUMARATE [Concomitant]
     Indication: PROPHYLAXIS
     Dates: start: 20090821
  5. BI-PRETERAX [Concomitant]
     Indication: PROPHYLAXIS
     Dates: start: 20091008

REACTIONS (1)
  - DEATH [None]
